FAERS Safety Report 4288836-1 (Version None)
Quarter: 2004Q1

REPORT INFORMATION
  Report Type: 
  Country: None (occurrence: None)
  Receive Date: 20040209
  Receipt Date: 20031128
  Transmission Date: 20041129
  Serious: Yes (Hospitalization, Other)
  Sender: FDA-Public Use
  Company Number: PHHO2003AR15359

PATIENT
  Age: 42 Year
  Sex: Female

DRUGS (2)
  1. NEORAL [Suspect]
     Indication: RENAL TRANSPLANT
     Dosage: 380 MG/DAY
     Route: 048
     Dates: start: 20030909
  2. PREDNISONE [Concomitant]
     Dosage: 15 MG, BID
     Route: 048
     Dates: start: 20031116

REACTIONS (4)
  - GRAFT DYSFUNCTION [None]
  - HAEMATURIA [None]
  - PYURIA [None]
  - URINARY TRACT INFECTION [None]
